FAERS Safety Report 20708369 (Version 4)
Quarter: 2022Q3

REPORT INFORMATION
  Report Type: Spontaneous
  Country: US (occurrence: US)
  Receive Date: 20220414
  Receipt Date: 20220913
  Transmission Date: 20221026
  Serious: Yes (Other)
  Sender: FDA-Public Use
  Company Number: US-NOVARTISPH-NVSC2022US084236

PATIENT
  Age: 12 Year
  Sex: Male
  Weight: 24.2 kg

DRUGS (1)
  1. KYMRIAH [Suspect]
     Active Substance: TISAGENLECLEUCEL
     Indication: Acute lymphocytic leukaemia recurrent
     Dosage: UNK UNK, ONCE/SINGLE (3.6 X 10^6 CAR POSITIVE VIABLE T-CELLS/KG BODY WEIGHT)
     Route: 042
     Dates: start: 20210817

REACTIONS (2)
  - Minimal residual disease [Not Recovered/Not Resolved]
  - Post-depletion B-cell recovery [Not Recovered/Not Resolved]

NARRATIVE: CASE EVENT DATE: 20220401
